FAERS Safety Report 10117454 (Version 1)
Quarter: 2014Q2

REPORT INFORMATION
  Report Type: Spontaneous
  Country: CN (occurrence: CN)
  Receive Date: 20140425
  Receipt Date: 20140425
  Transmission Date: 20141212
  Serious: Yes (Hospitalization)
  Sender: FDA-Public Use
  Company Number: CN-MERCK-1404CHN011135

PATIENT
  Age: 87 Year
  Sex: Female
  Weight: 51 kg

DRUGS (2)
  1. ZOCOR [Suspect]
     Indication: LIPIDS INCREASED
     Dosage: 20 MG, QD
     Route: 048
     Dates: start: 20120808, end: 20130426
  2. SIMVASTATIN [Concomitant]
     Indication: LIPIDS INCREASED
     Dosage: UNK, QD
     Route: 048
     Dates: start: 20130426, end: 20130626

REACTIONS (2)
  - Hepatocellular injury [Recovering/Resolving]
  - Rhabdomyolysis [Recovering/Resolving]
